FAERS Safety Report 7361142-4 (Version None)
Quarter: 2011Q1

REPORT INFORMATION
  Report Type: 
  Country: None (occurrence: None)
  Receive Date: 20110318
  Receipt Date: 20110311
  Transmission Date: 20110831
  Serious: Yes (Hospitalization)
  Sender: FDA-Public Use
  Company Number: FR-ELI_LILLY_AND_COMPANY-FR201103003967

PATIENT
  Sex: Male

DRUGS (7)
  1. LOXEN [Concomitant]
  2. TENORMIN [Concomitant]
  3. CRESTOR [Concomitant]
  4. KARDEGIC [Concomitant]
  5. EFFIENT [Suspect]
     Indication: ANGINA PECTORIS
     Dosage: 10 MG, DAILY (1/D)
     Route: 048
  6. ZANTAC [Concomitant]
  7. HEPARIN SODIUM [Concomitant]

REACTIONS (5)
  - HAEMOGLOBIN DECREASED [None]
  - ACTIVATED PARTIAL THROMBOPLASTIN TIME PROLONGED [None]
  - ANAEMIA [None]
  - MELAENA [None]
  - GASTRIC ULCER [None]
